FAERS Safety Report 20310702 (Version 1)
Quarter: 2022Q1

REPORT INFORMATION
  Report Type: Report from Study
  Country: US (occurrence: US)
  Receive Date: 20220107
  Receipt Date: 20220107
  Transmission Date: 20220423
  Serious: Yes (Hospitalization)
  Sender: FDA-Public Use
  Company Number: US-NOVARTISPH-NVSC2022US001868

PATIENT
  Age: 71 Year
  Sex: Male

DRUGS (1)
  1. ENTRESTO [Suspect]
     Active Substance: SACUBITRIL\VALSARTAN
     Indication: Product used for unknown indication
     Dosage: 1 DOSAGE FORM, BID (49/51 MG), STARTED TAKING ENTRESTO FOR A YEAR OR TWO
     Route: 048

REACTIONS (7)
  - COVID-19 [Unknown]
  - Oxygen saturation decreased [Unknown]
  - Asthenia [Unknown]
  - Feeling abnormal [Unknown]
  - Vision blurred [Unknown]
  - Muscular weakness [Recovering/Resolving]
  - Muscle tightness [Recovering/Resolving]

NARRATIVE: CASE EVENT DATE: 20211203
